FAERS Safety Report 4783587-9 (Version None)
Quarter: 2005Q3

REPORT INFORMATION
  Report Type: 
  Country: None (occurrence: None)
  Receive Date: 20050929
  Receipt Date: 20050920
  Transmission Date: 20060218
  Serious: Yes (Death)
  Sender: FDA-Public Use
  Company Number: KR-JNJFOC-20050904901

PATIENT
  Sex: Female
  Weight: 52 kg

DRUGS (9)
  1. SPORANOX [Suspect]
     Route: 042
  2. SPORANOX [Suspect]
     Route: 042
  3. PREPENEM [Concomitant]
     Route: 042
     Dates: start: 20050915, end: 20050920
  4. PREPENEM [Concomitant]
     Indication: INFECTION
     Route: 042
     Dates: start: 20050915, end: 20050920
  5. GRASIN [Concomitant]
     Indication: NEUTROPENIA
     Route: 058
     Dates: start: 20050906, end: 20050920
  6. METRONIDAZOLE [Concomitant]
     Indication: INFECTION
     Route: 048
     Dates: start: 20050828, end: 20050914
  7. VANCOMYCIN [Concomitant]
     Indication: INFECTION
     Route: 042
     Dates: start: 20050904, end: 20050914
  8. MEROPENEM [Concomitant]
     Indication: INFECTION
     Route: 042
     Dates: start: 20050907, end: 20050914
  9. TEICOPLANIN [Concomitant]
     Indication: INFECTION
     Route: 042
     Dates: start: 20050915, end: 20050920

REACTIONS (3)
  - BACTERIAL INFECTION [None]
  - CONDITION AGGRAVATED [None]
  - SEPSIS [None]
